FAERS Safety Report 10662630 (Version 1)
Quarter: 2014Q4

REPORT INFORMATION
  Report Type: Spontaneous
  Country: US (occurrence: None)
  Receive Date: 20141217
  Receipt Date: 20141217
  Transmission Date: 20150529
  Serious: No
  Sender: FDA-Public Use
  Company Number: None

PATIENT
  Age: 58 Year
  Sex: Female
  Weight: 74.84 kg

DRUGS (1)
  1. BUPROPION [Suspect]
     Active Substance: BUPROPION
     Indication: DEPRESSION
     Dosage: 6 WEEKS AND STILL ON THEM; 200 MG 2 DAILY
     Route: 048

REACTIONS (10)
  - Irritability [None]
  - Headache [None]
  - Decreased appetite [None]
  - Feeling jittery [None]
  - Anxiety [None]
  - Product quality issue [None]
  - Product substitution issue [None]
  - Depression [None]
  - Insomnia [None]
  - Middle insomnia [None]

NARRATIVE: CASE EVENT DATE: 20141201
